FAERS Safety Report 12187439 (Version 1)
Quarter: 2016Q1

REPORT INFORMATION
  Report Type: Spontaneous
  Country: US (occurrence: US)
  Receive Date: 20160317
  Receipt Date: 20160317
  Transmission Date: 20160526
  Serious: Yes (Hospitalization)
  Sender: FDA-Public Use
  Company Number: US-SMITH AND NEPHEW, INC-2016SMT00226

PATIENT
  Age: 26 Year
  Sex: Female
  Weight: 104.76 kg

DRUGS (9)
  1. UNSPECIFIED FLUID PILLS [Concomitant]
     Dosage: UNK
  2. CARVEDILOL. [Concomitant]
     Active Substance: CARVEDILOL
     Dosage: UNK
  3. WELLBUTRIN [Concomitant]
     Active Substance: BUPROPION HYDROCHLORIDE
     Dosage: UNK
  4. COLLAGENASE SANTYL [Suspect]
     Active Substance: COLLAGENASE CLOSTRIDIUM HISTOLYTICUM
     Indication: DIABETIC ULCER
     Dosage: UNK
     Dates: start: 201602
  5. LANTUS [Concomitant]
     Active Substance: INSULIN GLARGINE
     Dosage: UNK
  6. LAMICTAL [Concomitant]
     Active Substance: LAMOTRIGINE
     Dosage: UNK
  7. REGRANEX [Suspect]
     Active Substance: BECAPLERMIN
     Indication: DIABETIC FOOT
     Dosage: UNK UNK, EVERY 48 HOURS
     Route: 061
     Dates: start: 201601, end: 201602
  8. UNKNOWN MEDICATION FOR BLOOD PRESSURE [Concomitant]
     Dosage: UNK
  9. HUMALOG [Concomitant]
     Active Substance: INSULIN LISPRO
     Dosage: UNK

REACTIONS (6)
  - Protein urine present [Unknown]
  - Joint injury [Unknown]
  - Blood pressure increased [Unknown]
  - Renal disorder [Unknown]
  - Flank pain [Unknown]
  - Inappropriate schedule of drug administration [Unknown]

NARRATIVE: CASE EVENT DATE: 2016
